FAERS Safety Report 25498250 (Version 2)
Quarter: 2025Q3

REPORT INFORMATION
  Report Type: Spontaneous
  Country: US (occurrence: US)
  Receive Date: 20250701
  Receipt Date: 20250801
  Transmission Date: 20251021
  Serious: Yes (Other)
  Sender: AUROBINDO
  Company Number: US-AUROBINDO-AUR-APL-2025-031753

PATIENT
  Age: 36 Year
  Sex: Male

DRUGS (4)
  1. ARGATROBAN [Suspect]
     Active Substance: ARGATROBAN
     Indication: Heparin-induced thrombocytopenia
     Route: 065
  2. BIVALIRUDIN [Suspect]
     Active Substance: BIVALIRUDIN
     Indication: Subclavian vein thrombosis
     Route: 065
  3. BIVALIRUDIN [Suspect]
     Active Substance: BIVALIRUDIN
     Indication: Jugular vein thrombosis
  4. HEPARIN [Suspect]
     Active Substance: HEPARIN SODIUM
     Indication: Mesenteric artery thrombosis
     Route: 065

REACTIONS (2)
  - Gastrointestinal haemorrhage [Unknown]
  - Treatment failure [Unknown]
